FAERS Safety Report 4713821-2 (Version None)
Quarter: 2005Q3

REPORT INFORMATION
  Report Type: 
  Country: None (occurrence: None)
  Receive Date: 20050713
  Receipt Date: 20050704
  Transmission Date: 20060218
  Serious: Yes (Disabling)
  Sender: FDA-Public Use
  Company Number: MY-MERCK-0507MYS00001

PATIENT
  Age: 61 Year
  Sex: Female
  Weight: 60 kg

DRUGS (4)
  1. PRIMAXIN [Suspect]
     Indication: GALLBLADDER EMPYEMA
     Route: 042
     Dates: start: 20050628
  2. CARBAMAZEPINE [Concomitant]
     Indication: MYOCLONUS
     Route: 048
     Dates: start: 20050628
  3. PHENYTOIN [Concomitant]
     Indication: MYOCLONUS
     Route: 042
     Dates: start: 20050628
  4. VALPROATE SODIUM [Concomitant]
     Indication: MYOCLONUS
     Route: 042
     Dates: start: 20050628

REACTIONS (1)
  - MYOCLONUS [None]
